FAERS Safety Report 5870687-5 (Version None)
Quarter: 2008Q3

REPORT INFORMATION
  Report Type: 
  Country: None (occurrence: None)
  Receive Date: 20080904
  Receipt Date: 20080829
  Transmission Date: 20090109
  Serious: Yes (Other)
  Sender: FDA-Public Use
  Company Number: PHHY2008AR19749

PATIENT
  Sex: Female

DRUGS (3)
  1. GLEEVEC [Suspect]
     Indication: CHRONIC MYELOID LEUKAEMIA
     Dosage: 300 MG DAILY
     Dates: start: 20050901, end: 20070801
  2. GLEEVEC [Suspect]
     Dosage: 300 MG DAILY
  3. GLEEVEC [Suspect]
     Dosage: 300 MG DAILY

REACTIONS (1)
  - CREATININE RENAL CLEARANCE DECREASED [None]
